FAERS Safety Report 7326624-X (Version None)
Quarter: 2011Q1

REPORT INFORMATION
  Report Type: 
  Country: None (occurrence: None)
  Receive Date: 20110218
  Receipt Date: 20110211
  Transmission Date: 20110831
  Serious: No
  Sender: FDA-Public Use
  Company Number: 2011-00053

PATIENT
  Age: 54 Year
  Sex: Female
  Weight: 76.2043 kg

DRUGS (5)
  1. NEXIUM [Concomitant]
  2. ZICAM COLD REMEDY NASAL GEL [Suspect]
     Dosage: AS DIRECTED, ONGOING
     Dates: start: 20060101
  3. SYNTHROID [Concomitant]
  4. UNKNOWN HORMONE PATCH [Concomitant]
  5. IMITREX [Concomitant]

REACTIONS (2)
  - DYSGEUSIA [None]
  - PAROSMIA [None]
